FAERS Safety Report 19420851 (Version 1)
Quarter: 2021Q2

REPORT INFORMATION
  Report Type: Spontaneous
  Country: GB (occurrence: GB)
  Receive Date: 20210615
  Receipt Date: 20210615
  Transmission Date: 20210717
  Serious: Yes (Other)
  Sender: FDA-Public Use
  Company Number: GB-MYLANLABS-2021M1034374

PATIENT
  Age: 59 Year
  Sex: Female
  Weight: 63.5 kg

DRUGS (3)
  1. TAMOXIFEN [Suspect]
     Active Substance: TAMOXIFEN
     Indication: BREAST CANCER
     Dosage: 20 MILLIGRAM
     Route: 048
     Dates: start: 20171201
  2. CITALOPRAM [Concomitant]
     Active Substance: CITALOPRAM HYDROBROMIDE
     Dosage: 5 MILLIGRAM
  3. LEVOTHYROXINE. [Concomitant]
     Active Substance: LEVOTHYROXINE
     Dosage: 75 MILLIGRAM

REACTIONS (4)
  - Vulvovaginal pain [Not Recovered/Not Resolved]
  - Vulval haemorrhage [Not Recovered/Not Resolved]
  - Vulvovaginal discomfort [Not Recovered/Not Resolved]
  - Vulvovaginal dryness [Not Recovered/Not Resolved]

NARRATIVE: CASE EVENT DATE: 20190608
